FAERS Safety Report 25634288 (Version 1)
Quarter: 2025Q3

REPORT INFORMATION
  Report Type: Report from Study
  Country: US (occurrence: US)
  Receive Date: 20250801
  Receipt Date: 20250801
  Transmission Date: 20251021
  Serious: Yes (Other)
  Sender: ABBVIE
  Company Number: US-ABBVIE-6396851

PATIENT
  Age: 49 Year
  Sex: Male

DRUGS (5)
  1. RINVOQ [Suspect]
     Active Substance: UPADACITINIB
     Indication: Crohn^s disease
     Route: 048
     Dates: start: 20250204
  2. VITAMIN D3 [Concomitant]
     Active Substance: CHOLECALCIFEROL
     Indication: Full blood count decreased
  3. FOLIC ACID [Concomitant]
     Active Substance: FOLIC ACID
     Indication: Full blood count decreased
  4. VITAMIN B12 [Concomitant]
     Active Substance: CYANOCOBALAMIN
     Indication: Full blood count decreased
  5. FERROUS GLUCONATE [Concomitant]
     Active Substance: FERROUS GLUCONATE
     Indication: Full blood count decreased

REACTIONS (4)
  - Cataract [Unknown]
  - Full blood count decreased [Unknown]
  - Sleep disorder [Unknown]
  - Cataract [Unknown]

NARRATIVE: CASE EVENT DATE: 20250101
